FAERS Safety Report 26144079 (Version 1)
Quarter: 2025Q4

REPORT INFORMATION
  Report Type: Spontaneous
  Country: US (occurrence: US)
  Receive Date: 20251211
  Receipt Date: 20251211
  Transmission Date: 20260119
  Serious: Yes (Hospitalization)
  Sender: RANBAXY
  Company Number: US-SUN PHARMACEUTICAL INDUSTRIES INC-2025R1-540522

PATIENT
  Sex: Female

DRUGS (2)
  1. LITHIUM [Suspect]
     Active Substance: LITHIUM
     Indication: Antipsychotic therapy
     Dosage: UNK
     Route: 065
  2. TIRZEPATIDE [Concomitant]
     Active Substance: TIRZEPATIDE
     Indication: Weight control
     Dosage: INJECTIONS FOR PAST 6 WEEKS
     Route: 065

REACTIONS (4)
  - Disease recurrence [Unknown]
  - Electrolyte imbalance [Unknown]
  - Toxicity to various agents [Unknown]
  - Tachycardia [Unknown]
